FAERS Safety Report 5117119-2 (Version None)
Quarter: 2006Q3

REPORT INFORMATION
  Report Type: 
  Country: None (occurrence: None)
  Receive Date: 20060929
  Receipt Date: 20060824
  Transmission Date: 20061208
  Serious: Yes (Hospitalization, Other)
  Sender: FDA-Public Use
  Company Number: CZ-ABBOTT-06P-217-0342156-00

PATIENT
  Sex: Female

DRUGS (4)
  1. SIBUTRAMINE (BLINDED) [Suspect]
     Indication: OBESITY
     Route: 048
     Dates: start: 20031126, end: 20041001
  2. WARFARIN SODIUM [Concomitant]
     Indication: ATRIAL FIBRILLATION
     Dates: start: 20041002
  3. FUROSEMIDE [Concomitant]
     Indication: HYPERTENSION
     Dates: start: 20051214
  4. FUROSEMIDE [Concomitant]
     Indication: CARDIAC FAILURE

REACTIONS (1)
  - MITRAL VALVE STENOSIS [None]
